FAERS Safety Report 19778014 (Version 1)
Quarter: 2021Q3

REPORT INFORMATION
  Report Type: Spontaneous
  Country: US (occurrence: US)
  Receive Date: 20210831
  Receipt Date: 20210831
  Transmission Date: 20211014
  Serious: Yes (Hospitalization)
  Sender: FDA-Public Use
  Company Number: None

PATIENT
  Age: 69 Year
  Sex: Female

DRUGS (1)
  1. DIMETHYL FUMARATE 240 MG MYLAN [Suspect]
     Active Substance: DIMETHYL FUMARATE
     Indication: MULTIPLE SCLEROSIS
     Route: 048
     Dates: start: 20210630

REACTIONS (5)
  - Fall [None]
  - Coronary artery thrombosis [None]
  - Contusion [None]
  - Head injury [None]
  - Chest injury [None]

NARRATIVE: CASE EVENT DATE: 202107
